FAERS Safety Report 8322286-3 (Version None)
Quarter: 2012Q2

REPORT INFORMATION
  Report Type: 
  Country: None (occurrence: None)
  Receive Date: 20120430
  Receipt Date: 20120426
  Transmission Date: 20120825
  Serious: Yes (Death, Hospitalization, Other)
  Sender: FDA-Public Use
  Company Number: PHHY2012CA034894

PATIENT
  Sex: Female

DRUGS (8)
  1. HYDROCHLOROTHIAZIDE [Concomitant]
     Dosage: UNK UKN, UNK
  2. ZOLEDRONOC ACID [Suspect]
     Dosage: UNK UKN, UNK
     Route: 042
     Dates: start: 20110720
  3. CALCIUM WITH VITAMIN D [Concomitant]
     Dosage: UNK UKN, UNK
  4. REMERON [Concomitant]
     Dosage: UNK UKN, UNK
  5. ADVAIR DISKUS 100/50 [Concomitant]
     Dosage: UNK UKN, UNK
  6. ZOLEDRONOC ACID [Suspect]
     Indication: OSTEOPOROTIC FRACTURE
     Dosage: UNK UKN, UNK
     Route: 042
     Dates: start: 20100728
  7. ATIVAN [Concomitant]
     Dosage: UNK UKN, UNK
  8. SPIRIVA [Concomitant]
     Dosage: UNK UKN, UNK

REACTIONS (3)
  - FALL [None]
  - CONTUSION [None]
  - CARDIAC FAILURE [None]
